FAERS Safety Report 7916478-2 (Version None)
Quarter: 2011Q4

REPORT INFORMATION
  Report Type: 
  Country: None (occurrence: None)
  Receive Date: 20111114
  Receipt Date: 20111028
  Transmission Date: 20120403
  Serious: Yes (Disabling, Other)
  Sender: FDA-Public Use
  Company Number: 2011MA016158

PATIENT
  Age: 37 Year
  Sex: Male

DRUGS (2)
  1. LAMOTRIGINE [Suspect]
     Indication: CONVULSION
     Dosage: 400 MG; QD; UNK
  2. GABAPENTIN [Suspect]
     Indication: CONVULSION
     Dosage: 1800 MG; QD; UNK

REACTIONS (7)
  - FATIGUE [None]
  - COGNITIVE DISORDER [None]
  - STRESS [None]
  - GRAND MAL CONVULSION [None]
  - ABDOMINAL DISCOMFORT [None]
  - INSOMNIA [None]
  - TREATMENT NONCOMPLIANCE [None]
